FAERS Safety Report 20729783 (Version 1)
Quarter: 2022Q2

REPORT INFORMATION
  Report Type: Spontaneous
  Country: US (occurrence: US)
  Receive Date: 20220420
  Receipt Date: 20220420
  Transmission Date: 20220721
  Serious: Yes (Other)
  Sender: FDA-Public Use
  Company Number: US-SA-SAC20220418001618

PATIENT
  Age: 25 Year
  Sex: Male

DRUGS (6)
  1. ALPROLIX [Suspect]
     Active Substance: EFTRENONACOG ALFA
     Indication: Factor VIII deficiency
     Dosage: 7120 U (1 VIAL EACH OF 531 ICJ, 2162 IU AND 4427 ICJ), QW
     Route: 042
  2. ALPROLIX [Suspect]
     Active Substance: EFTRENONACOG ALFA
     Indication: Factor VIII deficiency
     Dosage: 7120 U (1 VIAL EACH OF 531 ICJ, 2162 IU AND 4427 ICJ), QW
     Route: 042
  3. ALPROLIX [Suspect]
     Active Substance: EFTRENONACOG ALFA
     Indication: Haemorrhage
     Dosage: 7120 U, Q3D
     Route: 042
  4. ALPROLIX [Suspect]
     Active Substance: EFTRENONACOG ALFA
     Indication: Haemorrhage
     Dosage: 7120 U, Q3D
     Route: 042
  5. ALPROLIX [Suspect]
     Active Substance: EFTRENONACOG ALFA
     Indication: Prophylaxis
  6. ALPROLIX [Suspect]
     Active Substance: EFTRENONACOG ALFA
     Indication: Prophylaxis

REACTIONS (5)
  - Haemorrhage [Not Recovered/Not Resolved]
  - Pain [Not Recovered/Not Resolved]
  - Traumatic haemorrhage [Not Recovered/Not Resolved]
  - Injury [Unknown]
  - Expired product administered [Unknown]

NARRATIVE: CASE EVENT DATE: 20220401
